FAERS Safety Report 4317245-1 (Version None)
Quarter: 2004Q1

REPORT INFORMATION
  Report Type: 
  Country: None (occurrence: None)
  Receive Date: 20040312
  Receipt Date: 20040302
  Transmission Date: 20041129
  Serious: Yes (Death, Hospitalization)
  Sender: FDA-Public Use
  Company Number: 2004014609

PATIENT
  Age: 74 Year
  Sex: Male

DRUGS (5)
  1. ZOLOFT [Suspect]
     Indication: DYSTHYMIC DISORDER
     Dosage: 25 MG DAILY, ORAL
     Route: 048
     Dates: start: 20040210, end: 20040220
  2. ATENOLOL [Concomitant]
  3. ACETYLSALICYLIC ACID SRT [Concomitant]
  4. PROTEIN SUPPLEMENTS [Concomitant]
  5. LORAZEPAM [Concomitant]

REACTIONS (2)
  - HYPONATRAEMIA [None]
  - SYNCOPE [None]
